FAERS Safety Report 13563894 (Version 3)
Quarter: 2017Q2

REPORT INFORMATION
  Report Type: Report from Study
  Country: JP (occurrence: JP)
  Receive Date: 20170519
  Receipt Date: 20170629
  Transmission Date: 20170830
  Serious: Yes (Hospitalization)
  Sender: FDA-Public Use
  Company Number: PHJP2017JP016638

PATIENT
  Age: 60 Year
  Sex: Female

DRUGS (12)
  1. PROGRAF [Concomitant]
     Active Substance: TACROLIMUS\TACROLIMUS ANHYDROUS
     Dosage: 1.7 MG, UNK
     Route: 048
     Dates: start: 20140611, end: 20150422
  2. PROGRAF [Concomitant]
     Active Substance: TACROLIMUS\TACROLIMUS ANHYDROUS
     Indication: HEART TRANSPLANT
     Dosage: 2.4 MG, UNK
     Route: 048
     Dates: start: 20101121
  3. PROGRAF [Concomitant]
     Active Substance: TACROLIMUS\TACROLIMUS ANHYDROUS
     Dosage: 1.7 MG, UNK
     Route: 048
     Dates: start: 20150428, end: 20160201
  4. HERBESSER [Concomitant]
     Active Substance: DILTIAZEM HYDROCHLORIDE
     Indication: PROPHYLAXIS
     Dosage: 100 MG, UNK
     Route: 048
     Dates: start: 20101121
  5. CERTICAN [Suspect]
     Active Substance: EVEROLIMUS
     Dosage: 1.25 MG, QD
     Route: 048
     Dates: start: 20150428
  6. RENIVACE [Concomitant]
     Active Substance: ENALAPRIL
     Indication: PROPHYLAXIS
     Dosage: 2.5 MG, UNK
     Route: 048
     Dates: start: 20150423
  7. CERTICAN [Suspect]
     Active Substance: EVEROLIMUS
     Indication: HEART TRANSPLANT
     Dosage: 1.0 MG, QD
     Route: 048
     Dates: start: 20120423, end: 20150408
  8. PROGRAF [Concomitant]
     Active Substance: TACROLIMUS\TACROLIMUS ANHYDROUS
     Dosage: 1.9 MG, UNK
     Route: 048
     Dates: start: 20160202
  9. PRAVASTATIN. [Concomitant]
     Active Substance: PRAVASTATIN
     Indication: HYPERLIPIDAEMIA
     Dosage: 10 MG, UNK
     Route: 048
     Dates: start: 20150423
  10. PROGRAF [Concomitant]
     Active Substance: TACROLIMUS\TACROLIMUS ANHYDROUS
     Dosage: 2.2 MG, UNK
     Route: 048
     Dates: start: 20150423, end: 20150427
  11. HERBESSER [Concomitant]
     Active Substance: DILTIAZEM HYDROCHLORIDE
     Dosage: 100 MG, UNK
     Route: 048
     Dates: start: 20150423, end: 20150726
  12. MEVALOTIN [Concomitant]
     Active Substance: PRAVASTATIN SODIUM
     Indication: PROPHYLAXIS
     Dosage: 10 MG, UNK
     Route: 048
     Dates: start: 20101121

REACTIONS (2)
  - Femoral neck fracture [Recovered/Resolved]
  - Fall [Recovered/Resolved]

NARRATIVE: CASE EVENT DATE: 20150409
